FAERS Safety Report 18734149 (Version 3)
Quarter: 2021Q2

REPORT INFORMATION
  Report Type: Spontaneous
  Country: FR (occurrence: FR)
  Receive Date: 20210113
  Receipt Date: 20210602
  Transmission Date: 20210717
  Serious: Yes (Hospitalization, Disabling, Other)
  Sender: FDA-Public Use
  Company Number: NVSC2021FR000556

PATIENT
  Age: 47 Year
  Sex: Female

DRUGS (52)
  1. CYPROTERONE [Suspect]
     Active Substance: CYPROTERONE
     Indication: HYPERANDROGENISM
     Dosage: UNK, ONE TABLET 7 DAYS A MONTH: THEN Y, TABLET 20 DAYS PER MONTH
     Route: 048
     Dates: start: 2000, end: 20040901
  2. CYPROTERONE ACETATE [Suspect]
     Active Substance: CYPROTERONE ACETATE
     Dosage: UNK, ONE TABLET 7 DAYS A MONTH; THEN 1/2 TABLET 20 DAYS PER MONTH
     Route: 048
     Dates: start: 20110907, end: 20111125
  3. CYPROTERONE ACETATE [Suspect]
     Active Substance: CYPROTERONE ACETATE
     Dosage: UNK, ONE TABLET 7 DAYS A MONTH; THEN 1/2 TABLET 20 DAYS PER MONTH
     Route: 048
     Dates: start: 20120102, end: 20120326
  4. CYPROTERONE ACETATE [Suspect]
     Active Substance: CYPROTERONE ACETATE
     Dosage: UNK, ONE TABLET 7 DAYS A MONTH; THEN 1/2 TABLET 20 DAYS PER MONTH
     Route: 048
     Dates: start: 20130111, end: 20130503
  5. CYPROTERONE ACETATE [Suspect]
     Active Substance: CYPROTERONE ACETATE
     Dosage: UNK, ONE TABLET 7 DAYS A MONTH; THEN 1/2 TABLET 20 DAYS PER MONTH
     Route: 048
     Dates: start: 20130602
  6. CYPROTERONE BIOGARAN [Interacting]
     Active Substance: CYPROTERONE ACETATE
     Dosage: ONE TABLET 7 DAYS A MONTH: THEN Y, TABLET 20 DAYS PER MONTH
     Route: 048
     Dates: start: 20140513
  7. CYPROTERON MYLAN [Suspect]
     Active Substance: CYPROTERONE ACETATE
     Dosage: ONE TABLET 7 DAYS A MONTH; THEN 1/2 TABLET 20 DAYS PER MONTH
     Route: 048
     Dates: start: 20100914
  8. CYPROTERON MYLAN [Suspect]
     Active Substance: CYPROTERONE ACETATE
     Dosage: ONE TABLET 7 DAYS A MONTH; THEN 1/2 TABLET 20 DAYS PER MONTH
     Route: 048
     Dates: start: 20101019
  9. ANDROCUR [Suspect]
     Active Substance: CYPROTERONE ACETATE
     Dosage: 1 DOSAGE FORM, DAILY
     Route: 065
     Dates: start: 19990723
  10. ANDROCUR [Suspect]
     Active Substance: CYPROTERONE ACETATE
     Dosage: 1 DF, QD
     Route: 065
     Dates: start: 20000916
  11. CYCLEANE [Concomitant]
     Active Substance: DESOGESTREL\ETHINYL ESTRADIOL
     Indication: PRODUCT USED FOR UNKNOWN INDICATION
     Dosage: UNK
     Route: 065
     Dates: start: 2000, end: 2004
  12. LUTESTRAL [Concomitant]
     Indication: PRODUCT USED FOR UNKNOWN INDICATION
     Dosage: UNK
     Route: 065
     Dates: start: 19961005
  13. CYPROTERONE [Suspect]
     Active Substance: CYPROTERONE
     Dosage: ONE TABLET 7 DAYS A MONTH; THEN 1/2 TABLET 20 DAYS PER MONTH
     Route: 048
     Dates: start: 20120720
  14. KEPPRA [Suspect]
     Active Substance: LEVETIRACETAM
     Indication: PROPHYLAXIS
     Dosage: UNK
     Route: 048
     Dates: start: 201408, end: 20141111
  15. CYPROTERONE BIOGARAN [Interacting]
     Active Substance: CYPROTERONE ACETATE
     Dosage: ONE TABLET 7 DAYS A MONTH: THEN Y, TABLET 20 DAYS PER MONTH
     Route: 048
     Dates: start: 20130612
  16. CYPROTERON MYLAN [Suspect]
     Active Substance: CYPROTERONE ACETATE
     Dosage: ONE TABLET 7 DAYS A MONTH; THEN 1/2 TABLET 20 DAYS PER MONTH
     Route: 048
     Dates: start: 20091105
  17. CYPROTERON MYLAN [Suspect]
     Active Substance: CYPROTERONE ACETATE
     Dosage: ONE TABLET 7 DAYS A MONTH; THEN 1/2 TABLET 20 DAYS PER MONTH
     Route: 048
     Dates: start: 20100701
  18. CYCLEANE [Concomitant]
     Active Substance: DESOGESTREL\ETHINYL ESTRADIOL
     Dosage: UNK
     Route: 065
     Dates: start: 200007, end: 200408
  19. CYPROTERONE ACETATE [Suspect]
     Active Substance: CYPROTERONE ACETATE
     Indication: HYPERANDROGENISM
     Dosage: UNK, ONE TABLET 7 DAYS A MONTH; THEN 1/2 TABLET 20 DAYS PER MONTH
     Route: 048
     Dates: start: 20100409, end: 20100701
  20. CYPROTERONE?TEVA [Interacting]
     Active Substance: CYPROTERONE ACETATE
     Indication: HYPERANDROGENISM
     Dosage: UNK, ONE TABLET 7 DAYS A MONTH; THEN 1/2 TABLET 20 DAYS PER MONTH
     Route: 048
     Dates: start: 20101206
  21. CYPROTERON MYLAN [Suspect]
     Active Substance: CYPROTERONE ACETATE
     Dosage: ONE TABLET 7 DAYS A MONTH; THEN 1/2 TABLET 20 DAYS PER MONTH
     Route: 048
     Dates: start: 20091002
  22. TRINORDIOL [Concomitant]
     Active Substance: ETHINYL ESTRADIOL\LEVONORGESTREL
     Dosage: UNK
     Route: 065
     Dates: start: 19990723
  23. ZOMIG [Concomitant]
     Active Substance: ZOLMITRIPTAN
     Indication: MIGRAINE
     Dosage: 12 DF, QMO
     Route: 065
  24. CYPROTERONE [Suspect]
     Active Substance: CYPROTERONE
     Dosage: ONE TABLET 7 DAYS A MONTH; THEN 1/2 TABLET 20 DAYS PER MONTH
     Route: 048
     Dates: start: 20111125
  25. ACETATE DE CYPROTERONE EG [Interacting]
     Active Substance: CYPROTERONE ACETATE
     Dosage: ONE TABLET 7 DAYS A MONTH: THEN Y, TABLET 20 DAYS PER MONTH
     Route: 048
     Dates: start: 20140712
  26. CYPROTERONE?TEVA [Interacting]
     Active Substance: CYPROTERONE ACETATE
     Dosage: UNK, ONE TABLET 7 DAYS A MONTH; THEN 1/2 TABLET 20 DAYS PER MONTH
     Route: 048
     Dates: start: 20110404
  27. CYPROTERONE BIOGARAN [Interacting]
     Active Substance: CYPROTERONE ACETATE
     Dosage: ONE TABLET 7 DAYS A MONTH: THEN Y, TABLET 20 DAYS PER MONTH
     Route: 048
     Dates: start: 20130827
  28. CYPROTERONE [Suspect]
     Active Substance: CYPROTERONE
     Dosage: ONE TABLET 7 DAYS A MONTH; THEN 1/2 TABLET 20 DAYS PER MONTH
     Route: 048
     Dates: start: 20120326
  29. CYPROTERONE [Suspect]
     Active Substance: CYPROTERONE
     Dosage: ONE TABLET 7 DAYS A MONTH; THEN 1/2 TABLET 20 DAYS PER MONTH
     Route: 048
     Dates: start: 20121016
  30. KEPPRA [Suspect]
     Active Substance: LEVETIRACETAM
     Indication: EPILEPSY
  31. CYPROTERONE BIOGARAN [Interacting]
     Active Substance: CYPROTERONE ACETATE
     Indication: HYPERANDROGENISM
     Dosage: ONE TABLET 7 DAYS A MONTH: THEN Y, TABLET 20 DAYS PER MONTH
     Route: 048
     Dates: start: 20130503
  32. ANDROCUR [Suspect]
     Active Substance: CYPROTERONE ACETATE
     Indication: HYPERANDROGENISM
     Dosage: 1 DOSAGE FORM, 10 DAYS A MONTH
     Route: 048
     Dates: start: 19980217
  33. ANDROCUR [Suspect]
     Active Substance: CYPROTERONE ACETATE
     Dosage: 1 DOSAGE FORM, 6 DAYS A MONTH
     Route: 048
  34. OROMONE [Concomitant]
     Active Substance: ESTRADIOL
     Dosage: 1 DF, 20 DAYS PER MONTH
     Route: 065
     Dates: start: 200507, end: 20120827
  35. TRINORDIOL [Concomitant]
     Active Substance: ETHINYL ESTRADIOL\LEVONORGESTREL
     Indication: PRODUCT USED FOR UNKNOWN INDICATION
     Dosage: UNK
     Route: 065
     Dates: start: 19980217, end: 202007
  36. CYPROTERONE BIOGARAN [Interacting]
     Active Substance: CYPROTERONE ACETATE
     Dosage: ONE TABLET 7 DAYS A MONTH: THEN Y, TABLET 20 DAYS PER MONTH
     Route: 048
     Dates: start: 20130926
  37. ANDROCUR [Suspect]
     Active Substance: CYPROTERONE ACETATE
     Dosage: ONE TABLET 7 DAYS A MONTH, THEN 1/2 TABLET 20 DAYS PER MONTH
     Route: 048
     Dates: start: 199806, end: 20040901
  38. ANDROCUR [Suspect]
     Active Substance: CYPROTERONE ACETATE
     Dosage: ONE TABLET 7 DAYS A MONTH, THEN 1/2 TABLET 20 DAYS PER MONTH
     Route: 048
     Dates: end: 20040901
  39. ALMOGRAN [Concomitant]
     Active Substance: ALMOTRIPTAN MALATE
     Indication: MIGRAINE
     Dosage: UNK
     Route: 065
  40. OMEPRAZOLE. [Suspect]
     Active Substance: OMEPRAZOLE
     Indication: PRODUCT USED FOR UNKNOWN INDICATION
     Dosage: UNK
     Route: 065
  41. CYPROTERONE SANDOZ [Interacting]
     Active Substance: CYPROTERONE ACETATE
     Indication: HYPERANDROGENISM
     Dosage: ONE TABLET 7 DAYS A MONTH; THEN 1/2 TABLET 20 DAYS PER MONTH
     Route: 048
     Dates: start: 20110616
  42. ACETATE DE CYPROTERONE EG [Interacting]
     Active Substance: CYPROTERONE ACETATE
     Indication: HYPERANDROGENISM
     Dosage: ONE TABLET 7 DAYS A MONTH: THEN Y, TABLET 20 DAYS PER MONTH
     Route: 048
     Dates: start: 20140329
  43. CYPROTERON MYLAN [Suspect]
     Active Substance: CYPROTERONE ACETATE
     Dosage: ONE TABLET 7 DAYS A MONTH; THEN 1/2 TABLET 20 DAYS PER MONTH
     Route: 048
     Dates: start: 20100302
  44. OROMONE [Concomitant]
     Active Substance: ESTRADIOL
     Indication: PRODUCT USED FOR UNKNOWN INDICATION
     Dosage: 1 DF, 20 DAYS PER MONTH
     Route: 065
     Dates: start: 20050713
  45. CYPROTERONE [Suspect]
     Active Substance: CYPROTERONE
     Dosage: UNK, ONE TABLET 7 DAYS A MONTH: THEN Y, TABLET 20 DAYS PER MONTH
     Route: 048
     Dates: start: 200507, end: 201506
  46. CYPROTERONE BIOGARAN [Interacting]
     Active Substance: CYPROTERONE ACETATE
     Dosage: ONE TABLET 7 DAYS A MONTH: THEN Y, TABLET 20 DAYS PER MONTH
     Route: 048
     Dates: start: 20140122
  47. CYPROTERON MYLAN [Suspect]
     Active Substance: CYPROTERONE ACETATE
     Indication: HYPERANDROGENISM
     Dosage: ONE TABLET 7 DAYS A MONTH: THEN Y, TABLET 20 DAYS PER MONTH
     Route: 048
     Dates: start: 20090615
  48. CYPROTERON MYLAN [Suspect]
     Active Substance: CYPROTERONE ACETATE
     Dosage: ONE TABLET 7 DAYS A MONTH; THEN 1/2 TABLET 20 DAYS PER MONTH
     Route: 048
     Dates: start: 20091218
  49. CYPROTERON MYLAN [Suspect]
     Active Substance: CYPROTERONE ACETATE
     Dosage: ONE TABLET 7 DAYS A MONTH; THEN 1/2 TABLET 20 DAYS PER MONTH
     Route: 048
     Dates: start: 20110728
  50. CYPROTERON MYLAN [Suspect]
     Active Substance: CYPROTERONE ACETATE
     Dosage: ONE TABLET 7 DAYS A MONTH; THEN 1/2 TABLET 20 DAYS PER MONTH
     Route: 048
     Dates: start: 20140603
  51. ANDROCUR [Suspect]
     Active Substance: CYPROTERONE ACETATE
     Dosage: 1/2 TABLET 7 DAYS A MONTH, THEN ONE TABLET 7 DAYS A MONTH, THEN 1/2 TABLET 20 DAYS A MONTH
     Route: 048
     Dates: start: 200507, end: 201506
  52. OROMONE [Concomitant]
     Active Substance: ESTRADIOL
     Dosage: 1 DF, 20 DAYS PER MONTH
     Route: 065
     Dates: start: 2005, end: 2013

REACTIONS (10)
  - Meningioma [Recovered/Resolved with Sequelae]
  - Intracranial tumour haemorrhage [Recovered/Resolved]
  - Product prescribing error [Unknown]
  - Condition aggravated [Unknown]
  - Sleep disorder [Not Recovered/Not Resolved]
  - Tension headache [Not Recovered/Not Resolved]
  - Fatigue [Not Recovered/Not Resolved]
  - Impaired work ability [Unknown]
  - Contraindicated product prescribed [Unknown]
  - Headache [Not Recovered/Not Resolved]

NARRATIVE: CASE EVENT DATE: 2008
